FAERS Safety Report 20160040 (Version 1)
Quarter: 2021Q4

REPORT INFORMATION
  Report Type: Spontaneous
  Country: CA (occurrence: CA)
  Receive Date: 20211208
  Receipt Date: 20211208
  Transmission Date: 20220303
  Serious: Yes (Life-Threatening, Hospitalization)
  Sender: FDA-Public Use
  Company Number: None

PATIENT
  Age: 13 Year
  Sex: Male
  Weight: 69 kg

DRUGS (27)
  1. TEMOZOLOMIDE [Suspect]
     Active Substance: TEMOZOLOMIDE
     Indication: Glioblastoma
     Dosage: 1 EVERY 1 DAYS
     Route: 048
  2. LOMUSTINE [Suspect]
     Active Substance: LOMUSTINE
     Indication: Glioblastoma
     Dosage: ONCE
     Route: 048
  3. ACETAMINOPHEN [Concomitant]
     Active Substance: ACETAMINOPHEN
  4. ALTEPLASE [Concomitant]
     Active Substance: ALTEPLASE
     Dosage: LIQUID INTRAVENOUS
  5. CALCIUM [Concomitant]
     Active Substance: CALCIUM
  6. CEFAZOLIN [Concomitant]
     Active Substance: CEFAZOLIN
  7. CEFOTAXIME [Concomitant]
     Active Substance: CEFOTAXIME SODIUM
  8. CHOLECALCIFEROL [Concomitant]
     Active Substance: CHOLECALCIFEROL
  9. CLOXACILLIN [Concomitant]
     Active Substance: CLOXACILLIN
     Dosage: POWDER FOR SOLUTION INTRAVENOUS
  10. DEXAMETHASONE [Concomitant]
     Active Substance: DEXAMETHASONE
     Dosage: LIQUID INTRA- ARTICULAR
  11. DIMENHYDRINATE [Concomitant]
     Active Substance: DIMENHYDRINATE
     Dosage: LIQUID INTRAVENOUS
  12. FLUCONAZOLE [Concomitant]
     Active Substance: FLUCONAZOLE
  13. HYDROCORTISONE [Concomitant]
     Active Substance: HYDROCORTISONE
  14. LANSOPRAZOLE [Concomitant]
     Active Substance: LANSOPRAZOLE
  15. LEVETIRACETAM [Concomitant]
     Active Substance: LEVETIRACETAM
  16. LEVOFLOXACIN [Concomitant]
     Active Substance: LEVOFLOXACIN
  17. MELATONIN [Concomitant]
     Active Substance: MELATONIN
  18. MEROPENEM [Concomitant]
     Active Substance: MEROPENEM
     Dosage: POWDER FOR SOLUTION INTRAVENOUS
  19. METHYLPHENIDATE [Concomitant]
     Active Substance: METHYLPHENIDATE
  20. MORPHINE [Concomitant]
     Active Substance: MORPHINE
  21. NYSTATIN [Concomitant]
     Active Substance: NYSTATIN
  22. ONDANSETRON [Concomitant]
     Active Substance: ONDANSETRON
  23. PIPERACILLIN AND TAZOBACTAM [Concomitant]
     Active Substance: PIPERACILLIN SODIUM\TAZOBACTAM SODIUM
  24. POLYETHYLENE GLYCOL [Concomitant]
     Active Substance: POLYETHYLENE GLYCOL
  25. ALBUTEROL [Concomitant]
     Active Substance: ALBUTEROL
     Dosage: LIQUID INTRAVENOUS
  26. TOBRAMYCIN [Concomitant]
     Active Substance: TOBRAMYCIN
  27. SULFAMETHOXAZOLE\TRIMETHOPRIM [Concomitant]
     Active Substance: SULFAMETHOXAZOLE\TRIMETHOPRIM

REACTIONS (9)
  - Aplastic anaemia [Recovered/Resolved]
  - Dyspnoea [Recovered/Resolved]
  - Febrile convulsion [Recovered/Resolved]
  - Hydrocephalus [Recovered/Resolved]
  - Organising pneumonia [Recovered/Resolved]
  - Oxygen saturation decreased [Recovered/Resolved]
  - Pancytopenia [Recovered/Resolved]
  - Respiratory distress [Recovered/Resolved]
  - Thrombocytopenia [Recovered/Resolved]
